FAERS Safety Report 4344892-3 (Version None)
Quarter: 2004Q2

REPORT INFORMATION
  Report Type: 
  Country: None (occurrence: None)
  Receive Date: 20040420
  Receipt Date: 20040408
  Transmission Date: 20050107
  Serious: No
  Sender: FDA-Public Use
  Company Number: 04H-167-0246969-00

PATIENT
  Age: 52 Year
  Sex: Female
  Weight: 63 kg

DRUGS (6)
  1. SEVOFLURANE   (ULTANE LIQUID FOR INHALATION) [Suspect]
     Indication: GENERAL ANAESTHESIA
     Dosage: 1.5%-8%, ONCE, INHALATION
     Route: 055
     Dates: start: 20040105, end: 20040105
  2. CARBAMAZEPINE [Concomitant]
  3. HORMONE REPLACEMENT THERAPY [Concomitant]
  4. NAPROXEN [Concomitant]
  5. FENTANYL [Concomitant]
  6. OXYGEN [Concomitant]

REACTIONS (2)
  - ANAESTHETIC COMPLICATION [None]
  - GRAND MAL CONVULSION [None]
